FAERS Safety Report 9860742 (Version 1)
Quarter: 2014Q1

REPORT INFORMATION
  Report Type: Spontaneous
  Country: CH (occurrence: CH)
  Receive Date: 20140202
  Receipt Date: 20140202
  Transmission Date: 20141002
  Serious: No
  Sender: FDA-Public Use
  Company Number: CH-ALLERGAN-1300807US

PATIENT
  Age: 40 Year
  Sex: Female

DRUGS (2)
  1. BOTOX LYOPHILISAT [Suspect]
     Indication: SKIN WRINKLING
     Dosage: UNK
     Dates: start: 20121108, end: 20121108
  2. BOTOX LYOPHILISAT [Suspect]
     Dosage: UNK
     Dates: start: 20121128, end: 20121128

REACTIONS (2)
  - Exposure during pregnancy [Unknown]
  - Drug administered at inappropriate site [Unknown]
